FAERS Safety Report 12550399 (Version 1)
Quarter: 2016Q3

REPORT INFORMATION
  Report Type: Spontaneous
  Country: BR (occurrence: BR)
  Receive Date: 20160712
  Receipt Date: 20160712
  Transmission Date: 20161109
  Serious: Yes (Disabling)
  Sender: FDA-Public Use
  Company Number: BR-LUNDBECK-DKLU2016250

PATIENT
  Sex: Female

DRUGS (6)
  1. RESFENOL [Concomitant]
     Indication: PRODUCT USED FOR UNKNOWN INDICATION
     Route: 065
  2. PHENOBARBITAL. [Concomitant]
     Active Substance: PHENOBARBITAL
     Indication: PRODUCT USED FOR UNKNOWN INDICATION
     Route: 065
  3. FRISIUM [Suspect]
     Active Substance: CLOBAZAM
     Indication: ANXIETY
     Route: 048
     Dates: start: 2015, end: 20160630
  4. VICOG [Concomitant]
     Active Substance: VINPOCETINE
     Indication: PRODUCT USED FOR UNKNOWN INDICATION
     Route: 065
  5. NEULEPTIL [Suspect]
     Active Substance: PERICIAZINE
     Route: 048
  6. NEULEPTIL [Suspect]
     Active Substance: PERICIAZINE
     Indication: ANXIETY
     Route: 048

REACTIONS (5)
  - Crying [Recovering/Resolving]
  - Premenstrual syndrome [Recovering/Resolving]
  - Sleep disorder [Recovering/Resolving]
  - Anxiety [Recovering/Resolving]
  - Motor dysfunction [Recovering/Resolving]
